FAERS Safety Report 6767042-2 (Version None)
Quarter: 2010Q2

REPORT INFORMATION
  Report Type: 
  Country: None (occurrence: None)
  Receive Date: 20100611
  Receipt Date: 20100603
  Transmission Date: 20101027
  Serious: Yes (Hospitalization, Other)
  Sender: FDA-Public Use
  Company Number: US-AMGEN-QUU409040

PATIENT
  Sex: Female
  Weight: 50.68 kg

DRUGS (1)
  1. NPLATE [Suspect]
     Indication: IDIOPATHIC THROMBOCYTOPENIC PURPURA
     Dates: start: 20090310, end: 20090721

REACTIONS (19)
  - ABDOMINAL DISCOMFORT [None]
  - ABNORMAL FAECES [None]
  - APHTHOUS STOMATITIS [None]
  - ASTHENIA [None]
  - CONTUSION [None]
  - DYSPNOEA EXERTIONAL [None]
  - FALL [None]
  - FLATULENCE [None]
  - HEADACHE [None]
  - MALAISE [None]
  - PAIN OF SKIN [None]
  - PETECHIAE [None]
  - PURPURA [None]
  - RASH [None]
  - RIB FRACTURE [None]
  - THROMBOCYTOPENIA [None]
  - VENOUS INSUFFICIENCY [None]
  - VOLVULUS [None]
  - WRIST FRACTURE [None]
